FAERS Safety Report 14321896 (Version 1)
Quarter: 2017Q4

REPORT INFORMATION
  Report Type: Spontaneous
  Country: IT (occurrence: IT)
  Receive Date: 20171225
  Receipt Date: 20171225
  Transmission Date: 20180321
  Serious: Yes (Congenital Anomaly, Other)
  Sender: FDA-Public Use
  Company Number: IT-ABBVIE-17P-083-2202111-00

PATIENT
  Sex: Female

DRUGS (4)
  1. CYMBALTA [Suspect]
     Active Substance: DULOXETINE HYDROCHLORIDE
     Indication: PRODUCT USED FOR UNKNOWN INDICATION
     Route: 064
  2. DEPAKINE [Suspect]
     Active Substance: VALPROATE SODIUM
     Indication: PRODUCT USED FOR UNKNOWN INDICATION
     Route: 064
  3. ABILIFY [Suspect]
     Active Substance: ARIPIPRAZOLE
     Indication: PRODUCT USED FOR UNKNOWN INDICATION
     Route: 064
  4. DEPAKINE [Suspect]
     Active Substance: VALPROATE SODIUM
     Route: 064

REACTIONS (6)
  - Ventricular septal defect [Unknown]
  - Femur-fibula-ulna complex [Unknown]
  - Heart disease congenital [Unknown]
  - Limb malformation [Unknown]
  - Exposure during pregnancy [Unknown]
  - Congenital foot malformation [Unknown]

NARRATIVE: CASE EVENT DATE: 201610
